FAERS Safety Report 9338777 (Version 1)
Quarter: 2013Q2

REPORT INFORMATION
  Report Type: Spontaneous
  Country: US (occurrence: US)
  Receive Date: 20130610
  Receipt Date: 20130610
  Transmission Date: 20140414
  Serious: Yes (Hospitalization, Other)
  Sender: FDA-Public Use
  Company Number: US-JNJFOC-20130600373

PATIENT
  Sex: Male
  Weight: 83.92 kg

DRUGS (12)
  1. RISPERIDONE [Suspect]
     Indication: SCHIZOPHRENIA
     Dosage: 2 MG IN MORNING AND 4 MG AT NIGHT
     Route: 048
     Dates: start: 201305
  2. RISPERIDONE [Suspect]
     Indication: SCHIZOPHRENIA
     Dosage: 1 MG IN MORNING AND 2 MG AT NIGHT
     Route: 048
     Dates: start: 201305, end: 201305
  3. RISPERIDONE [Suspect]
     Indication: SCHIZOPHRENIA
     Dosage: AT NIGHT
     Route: 048
     Dates: start: 201301, end: 201301
  4. RISPERIDONE [Suspect]
     Indication: SCHIZOPHRENIA
     Dosage: AT NIGHT
     Route: 048
     Dates: start: 201301, end: 201301
  5. RISPERIDONE [Suspect]
     Indication: SCHIZOPHRENIA
     Route: 048
     Dates: start: 201208, end: 201208
  6. RISPERIDONE [Suspect]
     Indication: SCHIZOPHRENIA
     Route: 048
     Dates: start: 200710, end: 201109
  7. HALDOL [Suspect]
     Indication: PRODUCT USED FOR UNKNOWN INDICATION
     Route: 065
  8. ZOLOFT [Suspect]
     Indication: OBSESSIVE-COMPULSIVE DISORDER
     Route: 065
     Dates: start: 201208, end: 2012
  9. ZYPREXA [Suspect]
     Indication: SCHIZOPHRENIA
     Route: 048
     Dates: start: 201109, end: 201208
  10. ATIVAN [Suspect]
     Indication: PRODUCT USED FOR UNKNOWN INDICATION
     Route: 065
  11. SEROQUEL [Suspect]
     Indication: PRODUCT USED FOR UNKNOWN INDICATION
     Route: 065
  12. DEPAKOTE [Concomitant]
     Route: 048

REACTIONS (5)
  - Urinary incontinence [Recovered/Resolved]
  - Schizophrenia [Not Recovered/Not Resolved]
  - Hospitalisation [Unknown]
  - Overdose [Unknown]
  - Drug ineffective [Not Recovered/Not Resolved]
